FAERS Safety Report 16918921 (Version 1)
Quarter: 2019Q4

REPORT INFORMATION
  Report Type: Spontaneous
  Country: GB (occurrence: GB)
  Receive Date: 20191015
  Receipt Date: 20191015
  Transmission Date: 20200122
  Serious: Yes (Hospitalization)
  Sender: FDA-Public Use
  Company Number: GB-MYLANLABS-2019M1095580

PATIENT
  Age: 84 Year
  Sex: Female
  Weight: 33 kg

DRUGS (10)
  1. BRIMONIDINE [Concomitant]
     Active Substance: BRIMONIDINE TARTRATE
     Dosage: UNK
  2. ACCRETE D3 [Concomitant]
     Active Substance: CALCIUM CARBONATE\CHOLECALCIFEROL
     Dosage: 1 DOSAGE FORM, QD(1000MG/880UNIT)
  3. DORZOLAMIDE [Concomitant]
     Active Substance: DORZOLAMIDE
     Dosage: 20 MILLIGRAM PER MILLILITRE
  4. MST CONTINUS [Concomitant]
     Active Substance: MORPHINE SULFATE
     Dosage: 5 MILLIGRAM
  5. TIMOLOL. [Concomitant]
     Active Substance: TIMOLOL
     Dosage: 5 MILLIGRAM PER MILLILITRE
  6. NAFTIDROFURYL [Concomitant]
     Active Substance: NAFRONYL
     Dosage: 100 MILLIGRAM
  7. SERTRALINE [Suspect]
     Active Substance: SERTRALINE HYDROCHLORIDE
     Indication: DEPRESSION
     Dosage: 50 MILLIGRAM, QD
     Route: 048
  8. LAXIDO [Concomitant]
     Active Substance: POLYETHYLENE GLYCOL 3350\POTASSIUM CHLORIDE\SODIUM BICARBONATE\SODIUM CHLORIDE
     Dosage: UNK
  9. LANSOPRAZOLE. [Concomitant]
     Active Substance: LANSOPRAZOLE
     Dosage: 15 MILLIGRAM
  10. PARACETAMOL [Concomitant]
     Active Substance: ACETAMINOPHEN
     Dosage: 500 MILLIGRAM

REACTIONS (6)
  - Dyskinesia [Unknown]
  - Tremor [Unknown]
  - Seizure [Recovered/Resolved]
  - Hallucination [Recovered/Resolved]
  - Eye movement disorder [Unknown]
  - Confusional state [Recovered/Resolved]
